FAERS Safety Report 10640134 (Version 1)
Quarter: 2014Q4

REPORT INFORMATION
  Report Type: Spontaneous
  Country: US (occurrence: None)
  Receive Date: 20141205
  Receipt Date: 20141205
  Transmission Date: 20150529
  Serious: No
  Sender: FDA-Public Use
  Company Number: None

PATIENT
  Age: 70 Year
  Sex: Female

DRUGS (1)
  1. CLOFARABINE [Suspect]
     Active Substance: CLOFARABINE

REACTIONS (6)
  - Palmar erythema [None]
  - Hypotonia [None]
  - Skin exfoliation [None]
  - Dysaesthesia [None]
  - Blister [None]
  - Respiratory distress [None]
